FAERS Safety Report 21650909 (Version 2)
Quarter: 2022Q4

REPORT INFORMATION
  Report Type: Spontaneous
  Country: US (occurrence: US)
  Receive Date: 20221128
  Receipt Date: 20221202
  Transmission Date: 20230112
  Serious: No
  Sender: FDA-Public Use
  Company Number: US-PFIZER INC-PV202200110196

PATIENT
  Age: 9 Month
  Sex: Female

DRUGS (1)
  1. EUCRISA [Suspect]
     Active Substance: CRISABOROLE
     Indication: Perioral dermatitis
     Dosage: UNK, 2X/DAY

REACTIONS (2)
  - Wound [Unknown]
  - Off label use [Unknown]
